FAERS Safety Report 19048668 (Version 1)
Quarter: 2021Q1

REPORT INFORMATION
  Report Type: Spontaneous
  Country: AU (occurrence: AU)
  Receive Date: 20210323
  Receipt Date: 20210323
  Transmission Date: 20210420
  Serious: Yes (Other)
  Sender: FDA-Public Use
  Company Number: NVSC2021AU065822

PATIENT
  Age: 67 Year
  Sex: Male

DRUGS (3)
  1. CYTARABINE. [Suspect]
     Active Substance: CYTARABINE
     Indication: CHLOROMA
     Dosage: UNK( 7 PLUS 3)
     Route: 037
  2. DEXAMETHASONE. [Suspect]
     Active Substance: DEXAMETHASONE
     Indication: CHLOROMA
     Dosage: UNK( 7 PLUS 3)
     Route: 037
  3. METHOTREXATE. [Suspect]
     Active Substance: METHOTREXATE
     Indication: CHLOROMA
     Dosage: UNK( 7 PLUS 3)
     Route: 037

REACTIONS (6)
  - Delirium [Recovered/Resolved]
  - Staphylococcal bacteraemia [Recovered/Resolved]
  - Drug reaction with eosinophilia and systemic symptoms [Recovered/Resolved]
  - Neutropenic colitis [Recovered/Resolved]
  - Escherichia bacteraemia [Recovered/Resolved]
  - Product use in unapproved indication [Unknown]
